FAERS Safety Report 10232296 (Version 1)
Quarter: 2014Q2

REPORT INFORMATION
  Report Type: Spontaneous
  Country: GB (occurrence: GB)
  Receive Date: 20140612
  Receipt Date: 20140612
  Transmission Date: 20141212
  Serious: Yes (Other)
  Sender: FDA-Public Use
  Company Number: GB-DRREDDYS-GER/UKI/14/0041015

PATIENT
  Age: 28 Year
  Sex: Male
  Weight: 63.5 kg

DRUGS (1)
  1. CETIRIZINE HYDROCHLORIDE 10MG TABLETS [Suspect]
     Indication: SEASONAL ALLERGY
     Route: 048
     Dates: start: 20140601, end: 20140602

REACTIONS (1)
  - Vision blurred [Recovered/Resolved]
